FAERS Safety Report 8013115-6 (Version None)
Quarter: 2011Q4

REPORT INFORMATION
  Report Type: 
  Country: None (occurrence: None)
  Receive Date: 20111229
  Receipt Date: 20111228
  Transmission Date: 20120403
  Serious: Yes (Hospitalization, Other)
  Sender: FDA-Public Use
  Company Number: US-JNJFOC-20110908439

PATIENT
  Sex: Female
  Weight: 68.04 kg

DRUGS (3)
  1. BENADRYL [Suspect]
     Dosage: NOW TAKING 700 MG IN 5 DIVIDED DOSES.
     Route: 048
  2. METHADONE HCL [Concomitant]
     Indication: DRUG THERAPY
     Route: 065
     Dates: start: 20091001
  3. BENADRYL [Suspect]
     Indication: ANTIDEPRESSANT THERAPY
     Route: 048

REACTIONS (5)
  - WITHDRAWAL SYNDROME [None]
  - DRUG ABUSE [None]
  - DRUG DEPENDENCE [None]
  - INTENTIONAL OVERDOSE [None]
  - CONFUSIONAL STATE [None]
